FAERS Safety Report 23538582 (Version 3)
Quarter: 2024Q2

REPORT INFORMATION
  Report Type: Report from Study
  Country: US (occurrence: US)
  Receive Date: 20240219
  Receipt Date: 20240403
  Transmission Date: 20240715
  Serious: Yes (Other)
  Sender: FDA-Public Use
  Company Number: US-ARGENX-2023-ARGX-US004323

PATIENT

DRUGS (2)
  1. VYVGART [Suspect]
     Active Substance: EFGARTIGIMOD ALFA-FCAB
     Indication: Myasthenia gravis
     Dosage: 400 MG, 1/WEEK, 400MG/20 ML;
     Route: 042
     Dates: start: 202305
  2. VYVGART [Suspect]
     Active Substance: EFGARTIGIMOD ALFA-FCAB
     Dosage: UNK
     Route: 042
     Dates: start: 202306

REACTIONS (18)
  - Lung neoplasm malignant [Unknown]
  - Feeling abnormal [Recovered/Resolved]
  - Balance disorder [Unknown]
  - Muscular weakness [Recovered/Resolved]
  - Inappropriate schedule of product administration [Unknown]
  - Fatigue [Recovered/Resolved]
  - Fatigue [Unknown]
  - Oral discomfort [Recovered/Resolved]
  - Loss of personal independence in daily activities [Recovered/Resolved]
  - Inappropriate schedule of product administration [Unknown]
  - Dyspnoea [Recovered/Resolved]
  - Urinary tract infection [Unknown]
  - Therapeutic response shortened [Unknown]
  - Bronchitis [Unknown]
  - Fatigue [Unknown]
  - Urinary tract infection [Unknown]
  - Blepharospasm [Unknown]
  - Gait disturbance [Recovered/Resolved]

NARRATIVE: CASE EVENT DATE: 20230101
